FAERS Safety Report 23754760 (Version 1)
Quarter: 2024Q2

REPORT INFORMATION
  Report Type: Spontaneous
  Country: CA (occurrence: CA)
  Receive Date: 20240418
  Receipt Date: 20240418
  Transmission Date: 20240716
  Serious: Yes (Other)
  Sender: FDA-Public Use
  Company Number: CA-BAYER-2024A058052

PATIENT
  Age: 85 Year
  Sex: Female
  Weight: 69 kg

DRUGS (1)
  1. XARELTO [Suspect]
     Active Substance: RIVAROXABAN
     Indication: Atrial fibrillation
     Dosage: 20 MG, QD
     Route: 048

REACTIONS (2)
  - Neuropathy peripheral [Recovered/Resolved]
  - Atrial fibrillation [Recovered/Resolved]
